FAERS Safety Report 24672828 (Version 1)
Quarter: 2024Q4

REPORT INFORMATION
  Report Type: Spontaneous
  Country: US (occurrence: US)
  Receive Date: 20241128
  Receipt Date: 20241128
  Transmission Date: 20250115
  Serious: No
  Sender: LEO PHARM
  Company Number: US-LEO Pharma-375397

PATIENT
  Age: 13 Year
  Sex: Male

DRUGS (1)
  1. ADBRY [Suspect]
     Active Substance: TRALOKINUMAB-LDRM
     Indication: Dermatitis atopic
     Dosage: INJECT 2 SYRINGES UNDER THE SKIN ON DAY ONE, THEN STARTING ON DAY 15, INJECT 1 SYRINGE EVERY OTHER W
     Dates: start: 202410

REACTIONS (2)
  - Hypersensitivity [Unknown]
  - Erythema [Unknown]
